FAERS Safety Report 7716856-0 (Version None)
Quarter: 2011Q3

REPORT INFORMATION
  Report Type: 
  Country: None (occurrence: None)
  Receive Date: 20110829
  Receipt Date: 20110819
  Transmission Date: 20111222
  Serious: Yes (Hospitalization, Other)
  Sender: FDA-Public Use
  Company Number: US-MPIJNJ-2011-01054

PATIENT
  Age: 53 Year
  Sex: Male
  Weight: 104.8 kg

DRUGS (7)
  1. VELCADE [Suspect]
     Dosage: 1.3 MG/M2, CYCLIC
     Route: 040
     Dates: start: 20110228, end: 20110228
  2. ACYCLOVIR [Concomitant]
     Indication: PRODUCT USED FOR UNKNOWN INDICATION
  3. ZOFRAN [Concomitant]
     Indication: PRODUCT USED FOR UNKNOWN INDICATION
  4. MULTI-VITAMINS [Concomitant]
     Indication: PRODUCT USED FOR UNKNOWN INDICATION
  5. FLAVOPIRIDOL [Suspect]
     Dosage: 75 MG/M2, CYCLIC
     Route: 040
     Dates: start: 20110228, end: 20110228
  6. ALLOPURINOL [Concomitant]
     Indication: PRODUCT USED FOR UNKNOWN INDICATION
  7. COMPAZINE [Concomitant]
     Indication: PRODUCT USED FOR UNKNOWN INDICATION

REACTIONS (6)
  - MUCOSAL INFECTION [None]
  - CD4 LYMPHOCYTES DECREASED [None]
  - OESOPHAGITIS [None]
  - DERMATITIS BULLOUS [None]
  - PHARYNGEAL INFLAMMATION [None]
  - STOMATITIS [None]
